FAERS Safety Report 9449741 (Version 1)
Quarter: 2013Q3

REPORT INFORMATION
  Report Type: Report from Study
  Country: JP (occurrence: JP)
  Receive Date: 20130809
  Receipt Date: 20130809
  Transmission Date: 20140515
  Serious: Yes (Hospitalization, Other)
  Sender: FDA-Public Use
  Company Number: JP-JNJFOC-20130803908

PATIENT
  Age: 71 Year
  Sex: Female
  Weight: 50 kg

DRUGS (14)
  1. SIMPONI [Suspect]
     Indication: RHEUMATOID ARTHRITIS
     Route: 058
     Dates: start: 20120502, end: 201206
  2. METOLATE [Suspect]
     Indication: RHEUMATOID ARTHRITIS
     Route: 048
     Dates: start: 20120502
  3. PREDONINE [Suspect]
     Indication: RHEUMATOID ARTHRITIS
     Route: 048
     Dates: start: 20120502
  4. PROCESSED ACONITE ROOT [Suspect]
     Indication: RHEUMATOID ARTHRITIS
     Route: 048
     Dates: start: 20120614
  5. PREMINENT TABLETS [Concomitant]
     Indication: HYPERTENSION
     Route: 048
  6. ALL OTHER THERAPEUTIC AGENTS [Concomitant]
     Route: 048
     Dates: start: 201206
  7. UNASYN-S [Concomitant]
     Indication: HEPATIC FUNCTION ABNORMAL
     Route: 041
     Dates: start: 20120628, end: 20120704
  8. UNASYN-S [Concomitant]
     Indication: HEPATIC FUNCTION ABNORMAL
     Route: 041
  9. LOXONIN [Concomitant]
     Indication: RHEUMATOID ARTHRITIS
     Route: 048
  10. VOLTAREN [Concomitant]
     Indication: RHEUMATOID ARTHRITIS
     Route: 054
     Dates: start: 20120614
  11. VESICARE [Concomitant]
     Indication: HYPERTONIC BLADDER
     Route: 048
  12. FOLIAMIN [Concomitant]
     Indication: PROPHYLAXIS
     Route: 048
  13. ONEALFA [Concomitant]
     Indication: OSTEOPOROSIS
     Route: 048
  14. AMLODIN [Concomitant]
     Indication: HYPERTENSION
     Route: 048

REACTIONS (4)
  - Pneumonia [Recovered/Resolved]
  - Hepatic function abnormal [Recovered/Resolved]
  - Arthralgia [Unknown]
  - Malaise [Unknown]
